FAERS Safety Report 9110438 (Version 1)
Quarter: 2013Q1

REPORT INFORMATION
  Report Type: Spontaneous
  Country: US (occurrence: US)
  Receive Date: 20130219
  Receipt Date: 20130219
  Transmission Date: 20140127
  Serious: Yes (Other)
  Sender: FDA-Public Use
  Company Number: US-BRACCO-007425

PATIENT
  Sex: Male

DRUGS (1)
  1. ISOVUE [Suspect]
     Indication: COMPUTERISED TOMOGRAM
     Dosage: EXTRAVASARTION OCCURERED DURING ADMINISTRATION
     Route: 042
     Dates: start: 20120120, end: 20120120

REACTIONS (3)
  - Extravasation [Recovering/Resolving]
  - Injection site swelling [Recovering/Resolving]
  - Drug ineffective [Unknown]
